FAERS Safety Report 7786386-9 (Version None)
Quarter: 2011Q3

REPORT INFORMATION
  Report Type: 
  Country: None (occurrence: None)
  Receive Date: 20110928
  Receipt Date: 20110928
  Transmission Date: 20111222
  Serious: Yes (Other)
  Sender: FDA-Public Use
  Company Number: None

PATIENT
  Sex: Female

DRUGS (3)
  1. FENTANYL [Suspect]
     Indication: PAIN
     Dosage: 12 MCG/HR Q 72 HOURS TRANSDERMAL-061
     Route: 062
     Dates: start: 20110801
  2. TRAMADOL HCL [Suspect]
     Indication: PAIN
     Dosage: 50 MG Q 4 HOURS PO-047
     Route: 048
     Dates: start: 20110601
  3. METHOCARBAMOL [Suspect]
     Indication: PAIN
     Dosage: 250MG Q 6HR PO-047
     Route: 048
     Dates: start: 20110801

REACTIONS (5)
  - AMNESIA [None]
  - FATIGUE [None]
  - MENTAL STATUS CHANGES [None]
  - HALLUCINATION [None]
  - DEPRESSION [None]
